FAERS Safety Report 14900515 (Version 1)
Quarter: 2018Q2

REPORT INFORMATION
  Report Type: Spontaneous
  Country: US (occurrence: US)
  Receive Date: 20180429
  Receipt Date: 20180429
  Transmission Date: 20180711
  Serious: Yes (Other)
  Sender: FDA-Public Use
  Company Number: None

PATIENT
  Age: 67 Year
  Sex: Female
  Weight: 54 kg

DRUGS (1)
  1. PROLIA [Suspect]
     Active Substance: DENOSUMAB
     Indication: OSTEOPOROSIS
     Dosage: ?          QUANTITY:1 INJECTION(S);OTHER FREQUENCY:ONCE EVERY 6 MO.;?
     Route: 030
     Dates: start: 20170606, end: 20171206

REACTIONS (12)
  - Bladder irritation [None]
  - Toothache [None]
  - Middle insomnia [None]
  - Nausea [None]
  - Back pain [None]
  - Pain in jaw [None]
  - Vertigo [None]
  - Neck pain [None]
  - Hypertension [None]
  - Visual impairment [None]
  - Headache [None]
  - Mouth ulceration [None]

NARRATIVE: CASE EVENT DATE: 20170820
